FAERS Safety Report 17100294 (Version 3)
Quarter: 2020Q2

REPORT INFORMATION
  Report Type: Spontaneous
  Country: US (occurrence: US)
  Receive Date: 20191202
  Receipt Date: 20200602
  Transmission Date: 20200713
  Serious: No
  Sender: FDA-Public Use
  Company Number: US-JNJFOC-20191133096

PATIENT
  Sex: Female
  Weight: 118.04 kg

DRUGS (7)
  1. INVEGA SUSTENNA [Suspect]
     Active Substance: PALIPERIDONE PALMITATE
     Indication: BIPOLAR DISORDER
     Route: 030
     Dates: start: 20191119
  2. XIMAX [Concomitant]
     Indication: ANXIETY
     Route: 065
     Dates: start: 20190925
  3. INVEGA [Concomitant]
     Active Substance: PALIPERIDONE
     Indication: BIPOLAR DISORDER
     Route: 048
     Dates: start: 20191204
  4. PRISTIQ EXTENDED-RELEASE [Concomitant]
     Active Substance: DESVENLAFAXINE SUCCINATE
     Indication: DEPRESSION
     Route: 065
     Dates: start: 20200120
  5. INVEGA SUSTENNA [Suspect]
     Active Substance: PALIPERIDONE PALMITATE
  6. INVEGA SUSTENNA [Suspect]
     Active Substance: PALIPERIDONE PALMITATE
  7. INVEGA [Concomitant]
     Active Substance: PALIPERIDONE
     Route: 065

REACTIONS (4)
  - Injection site mass [Recovered/Resolved]
  - Product dose omission [Recovered/Resolved]
  - Off label use [Unknown]
  - Product use in unapproved indication [Unknown]
